FAERS Safety Report 6558007-4 (Version None)
Quarter: 2010Q1

REPORT INFORMATION
  Report Type: 
  Country: None (occurrence: None)
  Receive Date: 20100129
  Receipt Date: 20100119
  Transmission Date: 20100710
  Serious: No
  Sender: FDA-Public Use
  Company Number: US-ELI_LILLY_AND_COMPANY-US200911002456

PATIENT
  Age: 53 Year
  Sex: Male

DRUGS (10)
  1. CYMBALTA [Suspect]
     Indication: DEPRESSION
     Dosage: 60 MG, DAILY (1/D)
     Route: 065
     Dates: start: 20060101, end: 20090801
  2. CYMBALTA [Suspect]
     Dosage: 60 MG, DAILY (1/D)
     Dates: start: 20100101
  3. ELAVIL [Concomitant]
     Dosage: 100 MG, EACH MORNING
     Route: 065
     Dates: start: 20060101
  4. ELAVIL [Concomitant]
     Dosage: 150 MG, EACH EVENING
  5. KLONOPIN [Concomitant]
     Dosage: 1 MG, EACH MORNING
     Route: 065
     Dates: start: 20060101
  6. KLONOPIN [Concomitant]
     Dosage: 1.5 MG, EACH EVENING
  7. COUMADIN [Concomitant]
     Dosage: 12 MG, UNK
     Dates: start: 20060101
  8. VASOTEC [Concomitant]
     Dosage: 5 MG, UNK
     Dates: start: 20060101
  9. NORVASC [Concomitant]
     Dosage: 5 MG, UNK
     Dates: start: 20060101, end: 20090801
  10. LASIX [Concomitant]
     Dosage: 40 MG, UNK
     Dates: start: 20060101, end: 20090801

REACTIONS (4)
  - CARDIAC DISORDER [None]
  - DRUG WITHDRAWAL SYNDROME [None]
  - LUNG DISORDER [None]
  - MENTAL DISORDER [None]
